FAERS Safety Report 5254633-3 (Version None)
Quarter: 2007Q1

REPORT INFORMATION
  Report Type: 
  Country: None (occurrence: None)
  Receive Date: 20070302
  Receipt Date: 20070222
  Transmission Date: 20070707
  Serious: Yes (Other)
  Sender: FDA-Public Use
  Company Number: US-PFIZER INC-2007014995

PATIENT
  Sex: Female
  Weight: 54.4 kg

DRUGS (6)
  1. CHANTIX [Suspect]
     Indication: EX-SMOKER
  2. ALL OTHER THERAPEUTIC PRODUCTS [Suspect]
     Indication: SLEEP DISORDER
  3. ESTRATEST [Concomitant]
  4. VICODIN [Concomitant]
  5. CALCIUM [Concomitant]
  6. HERBAL PREPARATION [Concomitant]

REACTIONS (5)
  - ABNORMAL DREAMS [None]
  - DIZZINESS [None]
  - HALLUCINATION [None]
  - MEMORY IMPAIRMENT [None]
  - POOR QUALITY SLEEP [None]
